FAERS Safety Report 21994918 (Version 1)
Quarter: 2023Q1

REPORT INFORMATION
  Report Type: Report from Study
  Country: US (occurrence: US)
  Receive Date: 20230215
  Receipt Date: 20230215
  Transmission Date: 20230417
  Serious: Yes (Other)
  Sender: FDA-Public Use
  Company Number: US-MYLANLABS-2023M1016651

PATIENT
  Sex: Female

DRUGS (2)
  1. REVATIO [Suspect]
     Active Substance: SILDENAFIL CITRATE
     Indication: Product used for unknown indication
     Dosage: UNK
     Route: 065
  2. MACITENTAN [Suspect]
     Active Substance: MACITENTAN
     Indication: Product used for unknown indication
     Dosage: 10 MILLIGRAM, QD, (1 TIME EVERY DAY
     Route: 048

REACTIONS (8)
  - Choking [Unknown]
  - Dysphagia [Unknown]
  - Gastritis [Unknown]
  - Glucose tolerance impaired [Unknown]
  - Hypoglycaemia [Unknown]
  - Polyp [Unknown]
  - Headache [Unknown]
  - Gastrooesophageal reflux disease [Unknown]
